FAERS Safety Report 4714051-0 (Version None)
Quarter: 2005Q3

REPORT INFORMATION
  Report Type: 
  Country: None (occurrence: None)
  Receive Date: 20050714
  Receipt Date: 20050630
  Transmission Date: 20060218
  Serious: Yes (Other)
  Sender: FDA-Public Use
  Company Number: PHBS2005JP09409

PATIENT
  Sex: 0

DRUGS (2)
  1. PARLODEL [Suspect]
     Route: 048
  2. ANTIBIOTICS [Suspect]

REACTIONS (1)
  - BLOOD POTASSIUM INCREASED [None]
